FAERS Safety Report 13807636 (Version 5)
Quarter: 2018Q1

REPORT INFORMATION
  Report Type: Report from Study
  Country: GB (occurrence: GB)
  Receive Date: 20170728
  Receipt Date: 20180307
  Transmission Date: 20180508
  Serious: Yes (Other)
  Sender: FDA-Public Use
  Company Number: GB-BRISTOL-MYERS SQUIBB COMPANY-BMS-2017-003444

PATIENT
  Sex: Female

DRUGS (1)
  1. ABATACEPT [Suspect]
     Active Substance: ABATACEPT
     Indication: RHEUMATOID ARTHRITIS
     Dosage: 125 MG, QWK
     Route: 058
     Dates: start: 20150729

REACTIONS (9)
  - Pain [Unknown]
  - Lower respiratory tract infection [Not Recovered/Not Resolved]
  - Nephrolithiasis [Unknown]
  - Infection [Unknown]
  - Urinary tract infection [Unknown]
  - Back pain [Unknown]
  - Escherichia infection [Unknown]
  - Influenza [Unknown]
  - Kidney infection [Unknown]
